FAERS Safety Report 5757897-2 (Version None)
Quarter: 2008Q2

REPORT INFORMATION
  Report Type: 
  Country: None (occurrence: None)
  Receive Date: 20080602
  Receipt Date: 20080602
  Transmission Date: 20081010
  Serious: No
  Sender: FDA-Public Use
  Company Number: None

PATIENT
  Age: 80 Year
  Sex: Female
  Weight: 48.0813 kg

DRUGS (2)
  1. DIGOXIN [Suspect]
     Indication: CARDIAC FAILURE
     Dosage: 1 TABLET DAILY
     Dates: start: 20080401
  2. COREG [Concomitant]

REACTIONS (3)
  - DEPRESSED MOOD [None]
  - FEELING ABNORMAL [None]
  - PHARMACEUTICAL PRODUCT COMPLAINT [None]
